FAERS Safety Report 16993824 (Version 1)
Quarter: 2019Q4

REPORT INFORMATION
  Report Type: Spontaneous
  Country: CL (occurrence: CL)
  Receive Date: 20191105
  Receipt Date: 20191105
  Transmission Date: 20200122
  Serious: Yes (Other)
  Sender: FDA-Public Use
  Company Number: CL-INCYTE CORPORATION-2019IN010831

PATIENT

DRUGS (5)
  1. PREDNISONE. [Suspect]
     Active Substance: PREDNISONE
     Indication: MYELOFIBROSIS
     Route: 065
  2. ASPIRIN. [Suspect]
     Active Substance: ASPIRIN
     Indication: MYELOFIBROSIS
     Route: 065
  3. JAKAVI [Suspect]
     Active Substance: RUXOLITINIB
     Indication: MYELOFIBROSIS
     Dosage: UNK
     Route: 065
     Dates: start: 201906, end: 201908
  4. THALIDOMIDE [Suspect]
     Active Substance: THALIDOMIDE
     Indication: MYELOFIBROSIS
     Dosage: UNK
     Route: 065
  5. HYDROXYUREA. [Suspect]
     Active Substance: HYDROXYUREA
     Indication: MYELOFIBROSIS
     Dosage: UNK
     Route: 065

REACTIONS (17)
  - Platelet count decreased [Unknown]
  - Liver disorder [Unknown]
  - Pruritus [Unknown]
  - Rash erythematous [Recovered/Resolved]
  - Splenomegaly [Unknown]
  - Blood glucose increased [Unknown]
  - Drug intolerance [Unknown]
  - Neutrophil percentage increased [Unknown]
  - Leukocytosis [Unknown]
  - Erythromelalgia [Unknown]
  - Marrow hyperplasia [Unknown]
  - Laboratory test abnormal [Unknown]
  - Weight decreased [Unknown]
  - Haemoglobin decreased [Unknown]
  - Blast cell count increased [Unknown]
  - Myelofibrosis [Unknown]
  - Multi-organ disorder [Unknown]
